FAERS Safety Report 9879795 (Version 7)
Quarter: 2014Q1

REPORT INFORMATION
  Report Type: Report from Study
  Country: GB (occurrence: GB)
  Receive Date: 20140206
  Receipt Date: 20140304
  Transmission Date: 20141002
  Serious: Yes (Death, Life-Threatening, Hospitalization, Other)
  Sender: FDA-Public Use
  Company Number: GB-TAKEDA-2014TUS000772

PATIENT
  Age: 80 Year
  Sex: Male
  Weight: 61.8 kg

DRUGS (11)
  1. PEGINESATIDE [Suspect]
     Indication: APLASIA PURE RED CELL
     Dosage: 2.8 MG, UNK
     Dates: start: 20110408, end: 20140110
  2. I-ALFACALCIDOL [Concomitant]
     Indication: HYPOCALCAEMIA
     Dosage: 0.25 ?G, QD
     Route: 048
     Dates: start: 20090909
  3. ATORVASTATIN [Concomitant]
     Indication: HYPERCHOLESTEROLAEMIA
     Dosage: 40 MG, QD
     Route: 048
     Dates: start: 20041209
  4. BISOPROLOL [Concomitant]
     Indication: HYPERTENSION
     Dosage: 2.5 MG, QD
     Route: 048
     Dates: start: 20061129
  5. GTN SPRAY [Concomitant]
     Indication: ANGINA PECTORIS
     Dosage: 1-2 PUFFS, PRN
     Route: 060
     Dates: start: 20020802
  6. ASPIRIN [Concomitant]
     Indication: ANTIPLATELET THERAPY
     Dosage: 75 MG
     Route: 048
     Dates: start: 20101216
  7. IRBESARTAN [Concomitant]
     Indication: HYPERTENSION
     Dosage: 300 MG
     Route: 048
     Dates: start: 20100827
  8. OMEPRAZOLE [Concomitant]
     Indication: GASTRITIS PROPHYLAXIS
     Dosage: 20 MG
     Route: 048
     Dates: start: 20100406
  9. QUININE SULPHATE [Concomitant]
     Indication: RESTLESS LEGS SYNDROME
     Dosage: 200 MG
     Route: 048
     Dates: start: 20110509
  10. RENAGEL (SEVELAMER) [Concomitant]
     Indication: HYPERPHOSPHATAEMIA
     Dosage: 800 MG
     Route: 048
     Dates: start: 20100310
  11. LACTULOSE [Concomitant]
     Indication: CONSTIPATION
     Dosage: 10 ML
     Route: 048
     Dates: start: 20041220

REACTIONS (7)
  - Respiratory failure [Fatal]
  - Urosepsis [Recovered/Resolved with Sequelae]
  - Pulmonary oedema [Not Recovered/Not Resolved]
  - Pulmonary oedema [Not Recovered/Not Resolved]
  - Cardiac arrest [Recovered/Resolved with Sequelae]
  - Pleural effusion [Not Recovered/Not Resolved]
  - Pleural effusion [Not Recovered/Not Resolved]
